FAERS Safety Report 21544729 (Version 1)
Quarter: 2022Q4

REPORT INFORMATION
  Report Type: Spontaneous
  Country: IT (occurrence: IT)
  Receive Date: 20221102
  Receipt Date: 20221102
  Transmission Date: 20230112
  Serious: Yes (Life-Threatening, Hospitalization)
  Sender: FDA-Public Use
  Company Number: None

PATIENT
  Age: 68 Year
  Sex: Male
  Weight: 75 kg

DRUGS (2)
  1. KEYTRUDA [Suspect]
     Active Substance: PEMBROLIZUMAB
     Indication: Transitional cell carcinoma
     Dosage: 200 MG EVERY 21 DAYS
     Route: 042
     Dates: start: 20220915
  2. ENTECAVIR [Concomitant]
     Active Substance: ENTECAVIR
     Indication: Liver disorder
     Dosage: 0.5 MG PER DAY
     Route: 048
     Dates: start: 20120201

REACTIONS (4)
  - Myalgia [Recovered/Resolved]
  - Erythema [Recovered/Resolved]
  - Myositis [Recovering/Resolving]
  - Myositis [Recovered/Resolved]

NARRATIVE: CASE EVENT DATE: 20220921
